FAERS Safety Report 12298140 (Version 1)
Quarter: 2016Q2

REPORT INFORMATION
  Report Type: Spontaneous
  Country: US (occurrence: US)
  Receive Date: 20160423
  Receipt Date: 20160423
  Transmission Date: 20160815
  Serious: Yes (Hospitalization, Disabling, Other)
  Sender: FDA-Public Use
  Company Number: US-VALIDUS PHARMACEUTICALS LLC-US-2016VAL001177

PATIENT

DRUGS (1)
  1. METOPROLOL. [Suspect]
     Active Substance: METOPROLOL
     Indication: PRODUCT USED FOR UNKNOWN INDICATION
     Dosage: UNK

REACTIONS (7)
  - Confusional state [Unknown]
  - Emphysema [Unknown]
  - Respiratory rate decreased [Unknown]
  - Activities of daily living impaired [Unknown]
  - Depression [Unknown]
  - Suicide attempt [Unknown]
  - Quality of life decreased [Unknown]
